FAERS Safety Report 5954203 (Version 2)
Quarter: 2020Q3

REPORT INFORMATION
  Report Type: Report from Study
  Country: US (occurrence: US)
  Receive Date: 20060103
  Receipt Date: 20060130
  Transmission Date: 20201104
  Serious: Yes (Death, Hospitalization)
  Sender: FDA-Public Use
  Company Number: US-JNJFOC-20051200949

PATIENT
  Age: 42 Year
  Sex: Female
  Weight: 70 kg

DRUGS (3)
  1. TIPIFARNIB [Suspect]
     Active Substance: TIPIFARNIB
     Dosage: ADMINISTERED FOR 1?14 DAYS, EVERY 21 DAYS
     Route: 048
     Dates: start: 20051117, end: 20051130
  2. XELODA [Suspect]
     Active Substance: CAPECITABINE
     Dosage: ADMINISTERED DAYS 1?14, EVERY 21 DAYS
     Dates: start: 20051117, end: 20051130
  3. FENTANYL. [Suspect]
     Active Substance: FENTANYL
     Indication: PRODUCT USED FOR UNKNOWN INDICATION

REACTIONS (7)
  - Breast cancer [Fatal]
  - Somnolence [Unknown]
  - Leukopenia [Unknown]
  - Thrombosis in device [Recovering/Resolving]
  - Febrile neutropenia [Unknown]
  - Neutropenia [Unknown]
  - Thrombocytopenia [Unknown]

NARRATIVE: CASE EVENT DATE: 20051117
